FAERS Safety Report 25527437 (Version 1)
Quarter: 2025Q3

REPORT INFORMATION
  Report Type: Spontaneous
  Country: CA (occurrence: CA)
  Receive Date: 20250708
  Receipt Date: 20250708
  Transmission Date: 20251021
  Serious: Yes (Other)
  Sender: JOHNSON AND JOHNSON
  Company Number: CA-JNJFOC-20250702577

PATIENT
  Age: 35 Year
  Sex: Male

DRUGS (1)
  1. INFLIXIMAB [Suspect]
     Active Substance: INFLIXIMAB
     Indication: Crohn^s disease
     Route: 041
     Dates: start: 201906, end: 202211

REACTIONS (2)
  - Dilated cardiomyopathy [Unknown]
  - Off label use [Unknown]

NARRATIVE: CASE EVENT DATE: 20190601
